FAERS Safety Report 4395010-7 (Version None)
Quarter: 2004Q3

REPORT INFORMATION
  Report Type: 
  Country: None (occurrence: None)
  Receive Date: 20040712
  Receipt Date: 20040628
  Transmission Date: 20050211
  Serious: Yes (Disabling)
  Sender: FDA-Public Use
  Company Number: PHRM2004FR02239

PATIENT
  Age: 46 Year
  Sex: Male

DRUGS (6)
  1. SANDIMMUNE [Suspect]
     Indication: LIVER TRANSPLANT
     Route: 042
     Dates: start: 20040513, end: 20040527
  2. ZOVIRAX [Suspect]
     Dosage: 1.4 G PER DAY
     Route: 042
     Dates: start: 20040527, end: 20040530
  3. PROGRAF [Suspect]
     Indication: LIVER TRANSPLANT
     Dosage: 2 DF PER DAY
     Route: 048
     Dates: start: 20040528
  4. ESOMEPRAZOLE [Concomitant]
  5. LEVOTHYROXINE SODIUM [Concomitant]
  6. HEPARIN [Concomitant]

REACTIONS (1)
  - DEAFNESS [None]
